FAERS Safety Report 7459469-0 (Version None)
Quarter: 2011Q2

REPORT INFORMATION
  Report Type: 
  Country: None (occurrence: None)
  Receive Date: 20110504
  Receipt Date: 20110504
  Transmission Date: 20111010
  Serious: Yes (Death)
  Sender: FDA-Public Use
  Company Number: None

PATIENT
  Age: 33 Year
  Sex: Male
  Weight: 75.6 kg

DRUGS (2)
  1. MENACTRA VACCINATION [Concomitant]
  2. ECULIZUMAB - SOLIRIS - ALEXION PHARMACEUTICALS [Suspect]
     Indication: PAROXYSMAL NOCTURNAL HAEMOGLOBINURIA
     Dosage: 900 MG EVERY 2 WEEKS IV BOLUS
     Route: 042
     Dates: start: 20100519, end: 20110420

REACTIONS (6)
  - VOMITING [None]
  - RESPIRATORY ARREST [None]
  - DIARRHOEA [None]
  - ABDOMINAL PAIN [None]
  - BRADYCARDIA [None]
  - CARDIAC ARREST [None]
